FAERS Safety Report 9179750 (Version 2)
Quarter: 2013Q2

REPORT INFORMATION
  Report Type: Spontaneous
  Country: US (occurrence: US)
  Receive Date: 20130321
  Receipt Date: 20130412
  Transmission Date: 20140414
  Serious: Yes (Hospitalization)
  Sender: FDA-Public Use
  Company Number: US-PFIZER INC-2013092278

PATIENT
  Age: 56 Year
  Sex: Female
  Weight: 145.13 kg

DRUGS (7)
  1. LYRICA [Suspect]
     Indication: FIBROMYALGIA
     Dosage: UNK
     Route: 048
  2. LYRICA [Suspect]
     Dosage: 150 MG, 2X/DAY
     Route: 048
  3. PROLIA [Concomitant]
     Dosage: UNK
  4. THEOPHYLLINE [Concomitant]
     Dosage: 200 MG, 2X/DAY
  5. OMEPRAZOLE [Concomitant]
     Dosage: 20 MG, 1X/DAY
  6. MONTELUKAST [Concomitant]
     Dosage: 10 MG, 1X/DAY
  7. PRAVASTATIN [Concomitant]
     Dosage: UNK

REACTIONS (6)
  - Asthma [Unknown]
  - Sinusitis [Not Recovered/Not Resolved]
  - Respiratory tract congestion [Not Recovered/Not Resolved]
  - Dyspnoea [Not Recovered/Not Resolved]
  - Dysphonia [Not Recovered/Not Resolved]
  - Toothache [Not Recovered/Not Resolved]
